FAERS Safety Report 16176062 (Version 1)
Quarter: 2019Q2

REPORT INFORMATION
  Report Type: Spontaneous
  Country: CA (occurrence: CA)
  Receive Date: 20190409
  Receipt Date: 20190409
  Transmission Date: 20190711
  Serious: Yes (Other)
  Sender: FDA-Public Use
  Company Number: CA-HLSUS-2019-CA-000390

PATIENT
  Sex: Male

DRUGS (1)
  1. CLOZAPINE. [Suspect]
     Active Substance: CLOZAPINE
     Indication: PRODUCT USED FOR UNKNOWN INDICATION
     Route: 065

REACTIONS (6)
  - Electrocardiogram abnormal [Unknown]
  - Diabetic ketoacidosis [Unknown]
  - Hyperkalaemia [Unknown]
  - Sinus tachycardia [Unknown]
  - Electrocardiogram T wave peaked [Unknown]
  - Ventricular tachycardia [Unknown]
